FAERS Safety Report 4946412-9 (Version None)
Quarter: 2006Q1

REPORT INFORMATION
  Report Type: 
  Country: None (occurrence: None)
  Receive Date: 20060317
  Receipt Date: 20060224
  Transmission Date: 20060701
  Serious: Yes (Hospitalization)
  Sender: FDA-Public Use
  Company Number: US-AVENTIS-200611850GDDC

PATIENT
  Age: 46 Year
  Sex: Male
  Weight: 41.82 kg

DRUGS (9)
  1. TAXOTERE [Suspect]
     Indication: SQUAMOUS CELL CARCINOMA
     Route: 042
     Dates: start: 20060206, end: 20060206
  2. CODE UNBROKEN [Suspect]
     Indication: SQUAMOUS CELL CARCINOMA
     Route: 048
     Dates: start: 20060206, end: 20060213
  3. CLONIDINE [Concomitant]
  4. ACETAMINOPHEN [Concomitant]
     Dosage: DOSE: 650 MG EVERY 6 HOURS
  5. DOCUSATE SODIUM [Concomitant]
  6. METOCLOPRAMIDE [Concomitant]
  7. PANTOPRAZOLE [Concomitant]
  8. METRONIDAZOLE [Concomitant]
  9. NEUPOGEN [Concomitant]
     Dosage: DOSE: UNK

REACTIONS (6)
  - ANAEMIA [None]
  - DIZZINESS [None]
  - FATIGUE [None]
  - HYPOPHOSPHATAEMIA [None]
  - LEUKOPENIA [None]
  - NEUTROPENIA [None]
